FAERS Safety Report 8375594-4 (Version None)
Quarter: 2012Q1

REPORT INFORMATION
  Report Type: 
  Country: None (occurrence: None)
  Receive Date: 20120323
  Receipt Date: 20110307
  Transmission Date: 20120608
  Serious: Yes (Other)
  Sender: FDA-Public Use
  Company Number: 163-21880-11020275

PATIENT
  Age: 78 Year
  Sex: Male

DRUGS (7)
  1. DIGOXIN [Concomitant]
  2. LOTREL (LOTREL) (CAPSULES) [Concomitant]
  3. TOPROL XL (METOPROLOL SUCCINATE) (TABLETS) [Concomitant]
  4. DEXAMETHASONE [Concomitant]
  5. ASPIRIN [Concomitant]
  6. REVLIMID [Suspect]
     Indication: MULTIPLE MYELOMA
     Dosage: 25 MG, DAILY X 21 DAYS, PO
     Route: 048
     Dates: start: 20100927
  7. SIMVASTATIN [Concomitant]

REACTIONS (1)
  - DEEP VEIN THROMBOSIS [None]
